FAERS Safety Report 8364694-0 (Version None)
Quarter: 2012Q2

REPORT INFORMATION
  Report Type: 
  Country: None (occurrence: None)
  Receive Date: 20120516
  Receipt Date: 20120503
  Transmission Date: 20120825
  Serious: Yes (Hospitalization)
  Sender: FDA-Public Use
  Company Number: SE-AMGEN-SWECT2012023407

PATIENT
  Age: 42 Year
  Sex: Female

DRUGS (3)
  1. ENBREL [Suspect]
     Indication: PRODUCT USED FOR UNKNOWN INDICATION
     Dosage: 50 MG, WEEKLY
     Route: 058
     Dates: start: 20110325, end: 20110912
  2. METHOTREXATE [Concomitant]
     Dosage: UNK
     Dates: start: 20110325, end: 20120110
  3. HUMIRA [Suspect]
     Indication: SPONDYLITIS
     Dosage: 40 MG, AS NEEDED
     Route: 058
     Dates: start: 20110926, end: 20120110

REACTIONS (1)
  - SARCOIDOSIS [None]
